FAERS Safety Report 21435803 (Version 2)
Quarter: 2022Q4

REPORT INFORMATION
  Report Type: Spontaneous
  Country: GB (occurrence: GB)
  Receive Date: 20221010
  Receipt Date: 20221011
  Transmission Date: 20230113
  Serious: Yes (Hospitalization, Other)
  Sender: FDA-Public Use
  Company Number: GB-PFIZER INC-PV202200072853

PATIENT
  Age: 22 Year
  Sex: Male

DRUGS (3)
  1. GENTAMICIN SULFATE [Suspect]
     Active Substance: GENTAMICIN SULFATE
     Indication: Pilonidal disease
     Dosage: UNK
     Route: 042
  2. METRONIDAZOLE [Suspect]
     Active Substance: METRONIDAZOLE
     Indication: Pilonidal disease
     Dosage: UNK
     Route: 042
  3. AMOXICILLIN [Suspect]
     Active Substance: AMOXICILLIN
     Indication: Pilonidal disease
     Dosage: UNK
     Route: 042

REACTIONS (3)
  - Condition aggravated [Recovering/Resolving]
  - Multiple organ dysfunction syndrome [Recovering/Resolving]
  - Septic shock [Recovering/Resolving]
